FAERS Safety Report 6261096-8 (Version None)
Quarter: 2009Q3

REPORT INFORMATION
  Report Type: 
  Country: None (occurrence: None)
  Receive Date: 20090707
  Receipt Date: 20090623
  Transmission Date: 20100115
  Serious: Yes (Other)
  Sender: FDA-Public Use
  Company Number: 2009AP002541

PATIENT
  Age: 7 Year
  Sex: Male

DRUGS (1)
  1. DIVALPROEX SODIUM [Suspect]
     Dosage: PO
     Route: 048

REACTIONS (1)
  - DRUG LEVEL ABOVE THERAPEUTIC [None]
